FAERS Safety Report 7354052-X (Version None)
Quarter: 2011Q1

REPORT INFORMATION
  Report Type: 
  Country: None (occurrence: None)
  Receive Date: 20110315
  Receipt Date: 20110309
  Transmission Date: 20110831
  Serious: Yes (Death, Other)
  Sender: FDA-Public Use
  Company Number: PHHY2011EC19796

PATIENT
  Sex: Female

DRUGS (2)
  1. EXELON [Suspect]
     Indication: DEMENTIA ALZHEIMER'S TYPE
     Dosage: 4.6MG/5CM2, ONE PATCH DAY IN-DAY OUT
     Route: 062
     Dates: start: 20100801, end: 20101001
  2. EXELON [Suspect]
     Dosage: 4.6 MG/5CM2 1 PATCH DAILY
     Route: 062
     Dates: start: 20101101, end: 20101230

REACTIONS (2)
  - CEREBRAL HAEMORRHAGE [None]
  - ARRHYTHMIA [None]
